FAERS Safety Report 17775976 (Version 1)
Quarter: 2020Q2

REPORT INFORMATION
  Report Type: Spontaneous
  Country: US (occurrence: US)
  Receive Date: 20200513
  Receipt Date: 20200513
  Transmission Date: 20200714
  Serious: No
  Sender: FDA-Public Use
  Company Number: None

PATIENT
  Age: 43 Year
  Sex: Female

DRUGS (1)
  1. COPAXONE [Suspect]
     Active Substance: GLATIRAMER ACETATE
     Indication: MULTIPLE SCLEROSIS
     Route: 058
     Dates: start: 20160831, end: 201912

REACTIONS (10)
  - Myalgia [None]
  - Chest discomfort [None]
  - Nausea [None]
  - Throat tightness [None]
  - Paraesthesia [None]
  - Palpitations [None]
  - Injection related reaction [None]
  - Headache [None]
  - Fatigue [None]
  - Chest pain [None]

NARRATIVE: CASE EVENT DATE: 20191206
